FAERS Safety Report 24593829 (Version 1)
Quarter: 2024Q4

REPORT INFORMATION
  Report Type: Spontaneous
  Country: DK (occurrence: DK)
  Receive Date: 20241108
  Receipt Date: 20241108
  Transmission Date: 20250114
  Serious: Yes (Hospitalization, Other)
  Sender: PFIZER
  Company Number: None

PATIENT
  Age: 36 Year
  Sex: Male

DRUGS (4)
  1. DEPO-MEDROL [Suspect]
     Active Substance: METHYLPREDNISOLONE ACETATE
     Indication: Pelvic deformity
     Dosage: 0.5 ML, SINGLE, MIXED WITH 1. 5 ML LIDOCAINE
     Dates: start: 20231025, end: 20231025
  2. DEPO-MEDROL [Suspect]
     Active Substance: METHYLPREDNISOLONE ACETATE
     Indication: Osteoarthritis
     Dosage: 0.8 ML, SINGLE, MIXED WITH 3 ML LIDOCAINE
     Dates: start: 20231121, end: 20231121
  3. LIDOCAINE [Concomitant]
     Active Substance: LIDOCAINE
     Indication: Pelvic deformity
     Dosage: 3 ML, SINGLE
     Dates: start: 20231121, end: 20231121
  4. LIDOCAINE [Concomitant]
     Active Substance: LIDOCAINE
     Indication: Osteoarthritis
     Dosage: 1.5 ML, SINGLE
     Dates: start: 20231025, end: 20231025

REACTIONS (2)
  - Osteonecrosis [Unknown]
  - Arthralgia [Unknown]

NARRATIVE: CASE EVENT DATE: 20230101
